FAERS Safety Report 4269495-0 (Version None)
Quarter: 2004Q1

REPORT INFORMATION
  Report Type: 
  Country: None (occurrence: None)
  Receive Date: 20040109
  Receipt Date: 20031223
  Transmission Date: 20041129
  Serious: Yes (Other)
  Sender: FDA-Public Use
  Company Number: 204048

PATIENT
  Age: 71 Year
  Sex: Female
  Weight: 65 kg

DRUGS (2)
  1. HERCEPTIN [Suspect]
     Indication: BREAST CANCER METASTATIC
     Dosage: 130 MG, INTRAVENOUS
     Route: 042
     Dates: start: 20020823, end: 20030813
  2. VINORELBINE (VINORELBINE) [Suspect]
     Indication: BREAST CANCER METASTATIC
     Dosage: 60 MG, INTRAVENOUS
     Route: 042
     Dates: start: 20020823, end: 20030813

REACTIONS (1)
  - CATARACT [None]
